FAERS Safety Report 8491274-9 (Version None)
Quarter: 2012Q3

REPORT INFORMATION
  Report Type: 
  Country: None (occurrence: None)
  Receive Date: 20120706
  Receipt Date: 20120703
  Transmission Date: 20120928
  Serious: Yes (Hospitalization)
  Sender: FDA-Public Use
  Company Number: PHHY2012FR057229

PATIENT
  Sex: Female

DRUGS (5)
  1. TEGRETOL [Suspect]
     Indication: TRIGEMINAL NEURALGIA
     Dosage: 2.5 ML, TID
     Dates: start: 20100101
  2. TEGRETOL [Suspect]
     Dates: end: 20120103
  3. ATHYMIL [Concomitant]
     Indication: DEPRESSION
     Dates: start: 20111001, end: 20120201
  4. MEMANTINE HYDROCHLORIDE [Concomitant]
     Indication: DEMENTIA ALZHEIMER'S TYPE
     Dosage: 1 DF, DAILY
  5. ACETAMINOPHEN [Concomitant]
     Indication: PAIN
     Dosage: 1 G, TID

REACTIONS (3)
  - COGNITIVE DISORDER [None]
  - EXTRAPYRAMIDAL DISORDER [None]
  - ABNORMAL BEHAVIOUR [None]
